FAERS Safety Report 6202601-7 (Version None)
Quarter: 2009Q2

REPORT INFORMATION
  Report Type: 
  Country: None (occurrence: None)
  Receive Date: 20090521
  Receipt Date: 20090521
  Transmission Date: 20091009
  Serious: No
  Sender: FDA-Public Use
  Company Number: None

PATIENT
  Sex: Male

DRUGS (2)
  1. METFORMIN HCL [Suspect]
     Dosage: 1000MG BID PO
     Route: 048
  2. METFORMIN HCL [Suspect]
     Dosage: 500MG QD PO
     Route: 048

REACTIONS (2)
  - BLOOD GLUCOSE INCREASED [None]
  - PRODUCT SUBSTITUTION ISSUE [None]
